FAERS Safety Report 21249976 (Version 1)
Quarter: 2022Q3

REPORT INFORMATION
  Report Type: Spontaneous
  Country: US (occurrence: None)
  Receive Date: 20220823
  Receipt Date: 20220823
  Transmission Date: 20221027
  Serious: No
  Sender: FDA-Public Use
  Company Number: None

PATIENT
  Age: 52 Year
  Sex: Female
  Weight: 97.34 kg

DRUGS (13)
  1. CAPECITABINE [Suspect]
     Active Substance: CAPECITABINE
     Indication: Colon cancer
     Dosage: FREQUENCY : TWICE A DAY;?
     Route: 048
     Dates: start: 202205
  2. CAPECITABINE [Suspect]
     Active Substance: CAPECITABINE
     Indication: Colon cancer
     Dosage: FREQUENCY : TWICE A DAY;?
     Route: 048
     Dates: start: 202205
  3. ABILIFY [Concomitant]
     Active Substance: ARIPIPRAZOLE
  4. DECADRON [Concomitant]
     Active Substance: DEXAMETHASONE
  5. DILTIAZEM [Concomitant]
     Active Substance: DILTIAZEM
  6. FAMOTIDINE [Concomitant]
     Active Substance: FAMOTIDINE
  7. FLUPHENAZINE [Concomitant]
     Active Substance: FLUPHENAZINE
  8. LATANOPROST [Concomitant]
     Active Substance: LATANOPROST
  9. LYRICA [Concomitant]
     Active Substance: PREGABALIN
  10. OXALIPLATIN [Concomitant]
     Active Substance: OXALIPLATIN
  11. SERTRALINE [Concomitant]
     Active Substance: SERTRALINE HYDROCHLORIDE
  12. VITAMIN D2 [Concomitant]
     Active Substance: ERGOCALCIFEROL
  13. ZOFRAN [Concomitant]
     Active Substance: ONDANSETRON HYDROCHLORIDE

REACTIONS (1)
  - Myocardial infarction [None]
